FAERS Safety Report 9169715 (Version 1)
Quarter: 2013Q1

REPORT INFORMATION
  Report Type: Spontaneous
  Country: CH (occurrence: CH)
  Receive Date: 20130318
  Receipt Date: 20130318
  Transmission Date: 20140127
  Serious: Yes (Other)
  Sender: FDA-Public Use
  Company Number: PHHY2013CH025446

PATIENT
  Sex: 0

DRUGS (3)
  1. METFORMIN [Suspect]
     Dosage: (MATERNAL DOSE:UNKNOWN)
     Route: 064
  2. ROSUVASTATIN [Suspect]
     Dosage: (MATERNAL DOSE: UNKNOWN)
     Route: 064
  3. ALLOPURINOL [Concomitant]
     Route: 064

REACTIONS (2)
  - Trisomy 21 [Unknown]
  - Foetal exposure during pregnancy [Unknown]
